FAERS Safety Report 18834548 (Version 1)
Quarter: 2021Q1

REPORT INFORMATION
  Report Type: Spontaneous
  Country: US (occurrence: US)
  Receive Date: 20210203
  Receipt Date: 20210203
  Transmission Date: 20210419
  Serious: Yes (Other)
  Sender: FDA-Public Use
  Company Number: None

PATIENT
  Age: 27 Year
  Sex: Female
  Weight: 81.6 kg

DRUGS (2)
  1. ZOFRAN [Suspect]
     Active Substance: ONDANSETRON HYDROCHLORIDE
     Indication: NAUSEA
     Route: 042
     Dates: start: 20201213, end: 20201214
  2. FENTANYL. [Concomitant]
     Active Substance: FENTANYL
     Dates: start: 20201213, end: 20201213

REACTIONS (8)
  - Serotonin syndrome [None]
  - Tremor [None]
  - Sinus tachycardia [None]
  - Chills [None]
  - Caesarean section [None]
  - Tachycardia foetal [None]
  - Tachycardia [None]
  - Blood pressure increased [None]

NARRATIVE: CASE EVENT DATE: 20201214
